FAERS Safety Report 18924165 (Version 1)
Quarter: 2021Q1

REPORT INFORMATION
  Report Type: Spontaneous
  Country: US (occurrence: US)
  Receive Date: 20210222
  Receipt Date: 20210222
  Transmission Date: 20210420
  Serious: No
  Sender: FDA-Public Use
  Company Number: US-TEVA-2019-US-1022779

PATIENT
  Age: 56 Year
  Sex: Male

DRUGS (2)
  1. TADAFIL TEVA [Suspect]
     Active Substance: TADALAFIL
     Indication: ERECTILE DYSFUNCTION
  2. TADAFIL TEVA [Suspect]
     Active Substance: TADALAFIL
     Indication: PROSTATE CANCER
     Dates: start: 201902

REACTIONS (2)
  - Drug ineffective [Unknown]
  - Product use in unapproved indication [Unknown]

NARRATIVE: CASE EVENT DATE: 201902
